FAERS Safety Report 20851419 (Version 2)
Quarter: 2022Q2

REPORT INFORMATION
  Report Type: Report from Study
  Country: ES (occurrence: ES)
  Receive Date: 20220519
  Receipt Date: 20220523
  Transmission Date: 20220721
  Serious: Yes (Hospitalization, Other)
  Sender: FDA-Public Use
  Company Number: ES-JNJFOC-20220526299

PATIENT

DRUGS (2)
  1. IMBRUVICA [Suspect]
     Active Substance: IBRUTINIB
     Indication: Chronic lymphocytic leukaemia
     Route: 048
  2. IMBRUVICA [Suspect]
     Active Substance: IBRUTINIB
     Indication: Lymphocytic lymphoma

REACTIONS (7)
  - Pericardial effusion [Unknown]
  - Upper gastrointestinal haemorrhage [Unknown]
  - Atrial fibrillation [Unknown]
  - Palpitations [Unknown]
  - Arrhythmia [Unknown]
  - Cardiac failure [Unknown]
  - Hypertension [Unknown]
